FAERS Safety Report 9381429 (Version 1)
Quarter: 2013Q3

REPORT INFORMATION
  Report Type: Spontaneous
  Country: JP (occurrence: JP)
  Receive Date: 20130703
  Receipt Date: 20130703
  Transmission Date: 20140515
  Serious: Yes (Other)
  Sender: FDA-Public Use
  Company Number: PHHY2013JP035111

PATIENT
  Age: 6 Year
  Sex: Male

DRUGS (1)
  1. NEORAL [Suspect]
     Indication: NEPHRITIC SYNDROME
     Route: 048

REACTIONS (2)
  - Nephrosclerosis [Unknown]
  - Glomerulosclerosis [Unknown]
